FAERS Safety Report 4695242-4 (Version None)
Quarter: 2005Q3

REPORT INFORMATION
  Report Type: 
  Country: None (occurrence: None)
  Receive Date: 20050613
  Receipt Date: 20050302
  Transmission Date: 20060218
  Serious: No
  Sender: FDA-Public Use
  Company Number: 2005-00406

PATIENT
  Age: 67 Year
  Sex: Female
  Weight: 68 kg

DRUGS (3)
  1. VELCADE [Suspect]
     Indication: MULTIPLE MYELOMA
     Dosage: UNK, UNK, INTRAVENOUS
     Route: 042
     Dates: start: 20050223
  2. PHENERGAN [Suspect]
     Indication: NAUSEA
     Dosage: UNK, UNK, ORAL
     Route: 048
     Dates: start: 20050301, end: 20050303
  3. DEXAMETHASONE [Concomitant]

REACTIONS (3)
  - FATIGUE [None]
  - MUSCLE TWITCHING [None]
  - SOMNOLENCE [None]
